FAERS Safety Report 9225388 (Version 2)
Quarter: 2013Q2

REPORT INFORMATION
  Report Type: Report from Study
  Country: SE (occurrence: SE)
  Receive Date: 20130411
  Receipt Date: 20130624
  Transmission Date: 20140414
  Serious: Yes (Death, Other)
  Sender: FDA-Public Use
  Company Number: SE-ROCHE-1211175

PATIENT
  Sex: 0

DRUGS (2)
  1. ALTEPLASE [Suspect]
     Indication: ISCHAEMIA
     Dosage: 1TO 2 MG/H IS ADMINISTERED DURING THE FIRST 4 HOURS, FOLLOWED BY 0.5 TO 1 MG/
     Route: 013
  2. HEPARIN [Suspect]
     Indication: ISCHAEMIA
     Route: 013

REACTIONS (2)
  - Compartment syndrome [Unknown]
  - Death [Fatal]
